FAERS Safety Report 5864045-7 (Version None)
Quarter: 2008Q3

REPORT INFORMATION
  Report Type: 
  Country: None (occurrence: None)
  Receive Date: 20080829
  Receipt Date: 20080605
  Transmission Date: 20090109
  Serious: Yes (Death, Other)
  Sender: FDA-Public Use
  Company Number: PHBS2008PK05509

PATIENT
  Age: 51 Year
  Sex: Male

DRUGS (6)
  1. IMATINIB MESYLATE [Suspect]
     Indication: CHRONIC MYELOID LEUKAEMIA
     Dosage: 400MG/DAY
     Dates: end: 20050901
  2. IMATINIB MESYLATE [Suspect]
     Dosage: 300MG/DAY
     Dates: start: 20050701
  3. IMATINIB MESYLATE [Suspect]
     Dosage: 200MG/DAY
     Dates: start: 20050801
  4. COMB. OF DRUGS FOR TREATMENT OF TUBERCULOSIS [Suspect]
  5. DICLOFENAC SODIUM [Concomitant]
     Indication: ARTHRALGIA
     Dosage: 50 MG, TID
     Route: 048
  6. TRANSFUSIONS [Suspect]

REACTIONS (21)
  - ABDOMINAL DISTENSION [None]
  - ALANINE AMINOTRANSFERASE INCREASED [None]
  - ANAEMIA [None]
  - ARTHRALGIA [None]
  - ASCITES [None]
  - BLOOD BILIRUBIN INCREASED [None]
  - BONE MARROW FAILURE [None]
  - DIZZINESS [None]
  - DYSPNOEA [None]
  - HAEMOGLOBIN DECREASED [None]
  - LIVER FUNCTION TEST ABNORMAL [None]
  - LYMPHADENOPATHY [None]
  - OCULAR ICTERUS [None]
  - PANCYTOPENIA [None]
  - PLATELET COUNT DECREASED [None]
  - PRODUCTIVE COUGH [None]
  - PYREXIA [None]
  - SPLENOMEGALY [None]
  - THROMBOCYTOPENIA [None]
  - TUBERCULOSIS [None]
  - WHITE BLOOD CELL COUNT DECREASED [None]
